FAERS Safety Report 13364582 (Version 5)
Quarter: 2017Q3

REPORT INFORMATION
  Report Type: Spontaneous
  Country: KR (occurrence: KR)
  Receive Date: 20170323
  Receipt Date: 20170831
  Transmission Date: 20171127
  Serious: Yes (Hospitalization, Other)
  Sender: FDA-Public Use
  Company Number: KR-009507513-1703KOR007098

PATIENT
  Age: 75 Year
  Sex: Male
  Weight: 48.1 kg

DRUGS (15)
  1. ADIPAM [Concomitant]
     Indication: PROPHYLAXIS
     Dosage: 10 MG (1 TABLET), TID
     Route: 048
     Dates: start: 20170212
  2. EPS [Concomitant]
     Indication: LUNG NEOPLASM MALIGNANT
     Dosage: 115 MG, QD
     Route: 042
     Dates: start: 20170216, end: 20170218
  3. DEXAMETHASONE SODIUM PHOSPHATE. [Concomitant]
     Active Substance: DEXAMETHASONE SODIUM PHOSPHATE
     Indication: PROPHYLAXIS OF NAUSEA AND VOMITING
     Dosage: 8 MG, ONCE;CONCENTRATION: 5MG/ML
     Route: 042
     Dates: start: 20170216, end: 20170218
  4. EMEND (FOSAPREPITANT DIMEGLUMINE) [Suspect]
     Active Substance: FOSAPREPITANT DIMEGLUMINE
     Indication: PROPHYLAXIS OF NAUSEA AND VOMITING
     Dosage: 150 MG, ONCE
     Route: 042
     Dates: start: 20170216, end: 20170216
  5. DEXAMETHASONE. [Concomitant]
     Active Substance: DEXAMETHASONE
     Indication: PROPHYLAXIS OF NAUSEA AND VOMITING
     Dosage: 8 MG, ONCE
     Route: 048
     Dates: start: 20170218, end: 20170218
  6. ALOXI [Concomitant]
     Active Substance: PALONOSETRON HYDROCHLORIDE
     Indication: PROPHYLAXIS OF NAUSEA AND VOMITING
     Dosage: 0.25 MG, ONCE
     Route: 042
     Dates: start: 20170216, end: 20170216
  7. CISPLATIN. [Concomitant]
     Active Substance: CISPLATIN
     Indication: LUNG NEOPLASM MALIGNANT
     Dosage: 80 MG, QD; CONCENTRATION: 50MG/100ML
     Route: 042
     Dates: start: 20170216, end: 20170216
  8. ASIMA [Concomitant]
     Indication: COUGH
     Dosage: 400 MG (1 TABLET), BID
     Route: 048
     Dates: start: 20170208
  9. ERDOIN [Concomitant]
     Indication: PRODUCTIVE COUGH
  10. EBASTEL [Concomitant]
     Active Substance: EBASTINE
     Indication: ALLERGY PROPHYLAXIS
     Dosage: 1 TABLET,QD
     Route: 048
     Dates: start: 20170211
  11. GASTER [Concomitant]
     Active Substance: FAMOTIDINE
     Indication: PROPHYLAXIS
     Dosage: 20 MG (1 TABLET), BID
     Route: 048
     Dates: start: 20170216, end: 20170218
  12. METOCLOPRAMIDE. [Concomitant]
     Active Substance: METOCLOPRAMIDE
     Indication: PROPHYLAXIS
     Dosage: 3.84 MG (1 TABLE), TID
     Route: 048
     Dates: start: 20170218, end: 20170222
  13. ERDOIN [Concomitant]
     Indication: COUGH
     Dosage: 300 MG (1 CAPSULE), BID
     Route: 048
     Dates: start: 20170208
  14. XOTERNA [Concomitant]
     Indication: CHRONIC OBSTRUCTIVE PULMONARY DISEASE
     Dosage: 50 MICROGRAM, QD; ROUTE: INHALATION
     Route: 055
     Dates: start: 20170205
  15. MANNITOL. [Concomitant]
     Active Substance: MANNITOL
     Indication: PROPHYLAXIS
     Dosage: 100 ML, ONCE
     Route: 042
     Dates: start: 20170216, end: 20170216

REACTIONS (3)
  - Pseudomonas infection [Recovered/Resolved]
  - Pruritus [Recovered/Resolved]
  - Febrile neutropenia [Recovered/Resolved]

NARRATIVE: CASE EVENT DATE: 20170228
